FAERS Safety Report 5775985-1 (Version None)
Quarter: 2008Q2

REPORT INFORMATION
  Report Type: 
  Country: None (occurrence: None)
  Receive Date: 20080601
  Receipt Date: 20080207
  Transmission Date: 20081010
  Serious: No
  Sender: FDA-Public Use
  Company Number: US200801003493

PATIENT
  Age: 46 Year
  Sex: Female
  Weight: 90.7 kg

DRUGS (3)
  1. BYETTA [Suspect]
     Indication: TYPE 2 DIABETES MELLITUS
     Dosage: 5 UG, 2/D, SUBCUTANEOUS
     Route: 058
     Dates: start: 20080115
  2. EXENATIDE 5MCG PEN, DISPOSABLE DEVICE (EXENATIDE PEN (5MCG)) PEN,DISPO [Concomitant]
  3. METFORMIN HCL [Concomitant]

REACTIONS (9)
  - DECREASED APPETITE [None]
  - DRUG HYPERSENSITIVITY [None]
  - FATIGUE [None]
  - INFLAMMATION [None]
  - INFLUENZA [None]
  - INJECTION SITE URTICARIA [None]
  - NAUSEA [None]
  - PRURITUS [None]
  - VOMITING [None]
